FAERS Safety Report 6249683-4 (Version None)
Quarter: 2009Q2

REPORT INFORMATION
  Report Type: 
  Country: None (occurrence: None)
  Receive Date: 20090629
  Receipt Date: 20090616
  Transmission Date: 20091009
  Serious: Yes (Hospitalization)
  Sender: FDA-Public Use
  Company Number: FR-MYLANLABS-2009S1010624

PATIENT
  Age: 60 Year
  Sex: Male

DRUGS (4)
  1. VERAPAMIL [Suspect]
     Indication: DRUG USE FOR UNKNOWN INDICATION
     Dosage: 30 TABLETS
  2. VERAPAMIL [Suspect]
     Dosage: 240 MG/DAY
  3. CLOPIDOGREL [Suspect]
     Indication: DRUG USE FOR UNKNOWN INDICATION
  4. CLOPIDOGREL [Suspect]

REACTIONS (2)
  - GASTROINTESTINAL ISCHAEMIA [None]
  - INTENTIONAL OVERDOSE [None]
